FAERS Safety Report 4269873-X (Version None)
Quarter: 2004Q1

REPORT INFORMATION
  Report Type: 
  Country: None (occurrence: None)
  Receive Date: 20040114
  Receipt Date: 20040108
  Transmission Date: 20041129
  Serious: Yes (Hospitalization)
  Sender: FDA-Public Use
  Company Number: 200410182US

PATIENT
  Sex: Female

DRUGS (14)
  1. TAXOTERE [Suspect]
     Indication: NON-SMALL CELL LUNG CANCER
     Route: 042
     Dates: start: 20031022, end: 20031203
  2. DECADRON [Suspect]
     Indication: PREMEDICATION
     Route: 042
  3. GLUCOTROL [Concomitant]
     Indication: DIABETES MELLITUS NON-INSULIN-DEPENDENT
     Route: 048
     Dates: start: 19900101
  4. SYNTHROID [Concomitant]
     Indication: HYPOTHYROIDISM
     Route: 048
     Dates: start: 19900101
  5. AMARYL [Concomitant]
     Indication: DIABETES MELLITUS NON-INSULIN-DEPENDENT
     Route: 048
     Dates: start: 19900101
  6. ACTOS [Concomitant]
     Indication: DIABETES MELLITUS NON-INSULIN-DEPENDENT
     Route: 048
     Dates: start: 19960101
  7. ALBUTEROL [Concomitant]
     Indication: CHRONIC OBSTRUCTIVE AIRWAYS DISEASE
     Dosage: DOSE: 2 PUFFS
     Route: 055
     Dates: start: 19970101
  8. FERROUS SULFATE TAB [Concomitant]
     Indication: ANAEMIA
     Route: 048
     Dates: start: 20031021
  9. MEGACE [Concomitant]
     Indication: ANOREXIA
     Route: 048
     Dates: start: 20031119
  10. SSRI [Concomitant]
     Route: 048
     Dates: start: 20031203
  11. COUMADIN [Concomitant]
     Indication: DEEP VEIN THROMBOSIS
     Route: 048
     Dates: start: 20031217
  12. AMBIEN [Concomitant]
     Indication: INSOMNIA
     Dosage: DOSE: 5 MG (1-2 DROPS )
     Route: 048
     Dates: start: 20031208
  13. LASIX [Concomitant]
     Indication: OEDEMA
     Route: 048
     Dates: start: 20031121
  14. KCL TAB [Concomitant]
     Route: 048
     Dates: start: 20031121

REACTIONS (11)
  - ANOREXIA [None]
  - ASTHENIA [None]
  - BLOOD ALBUMIN DECREASED [None]
  - BLOOD CALCIUM DECREASED [None]
  - BLOOD SODIUM DECREASED [None]
  - BLOOD UREA INCREASED [None]
  - DYSPNOEA [None]
  - HYPERGLYCAEMIA [None]
  - LETHARGY [None]
  - PLEURAL EFFUSION [None]
  - PROTEIN TOTAL DECREASED [None]
